FAERS Safety Report 14412603 (Version 9)
Quarter: 2018Q2

REPORT INFORMATION
  Report Type: Report from Study
  Country: MX (occurrence: MX)
  Receive Date: 20180119
  Receipt Date: 20180620
  Transmission Date: 20180711
  Serious: Yes (Death, Hospitalization)
  Sender: FDA-Public Use
  Company Number: MX-PFIZER INC-2018013361

PATIENT
  Age: 59 Year
  Sex: Female
  Weight: 62 kg

DRUGS (3)
  1. SUTENT [Suspect]
     Active Substance: SUNITINIB MALATE
     Indication: RENAL CELL CARCINOMA
     Dosage: 50 MG, CYCLIC (4:2)
     Route: 048
     Dates: start: 20171213, end: 20180104
  2. HIDROCORTISONA /00028601/ [Concomitant]
     Active Substance: HYDROCORTISONE
     Dosage: 200 MG, DAILY
     Route: 042
  3. HIDROCORTISONA /00028601/ [Concomitant]
     Active Substance: HYDROCORTISONE
     Indication: PITUITARY HAEMORRHAGE
     Dosage: 100 MG, 2 ML
     Route: 042

REACTIONS (1)
  - Pituitary haemorrhage [Not Recovered/Not Resolved]

NARRATIVE: CASE EVENT DATE: 20180104
